FAERS Safety Report 5830123-1 (Version None)
Quarter: 2008Q3

REPORT INFORMATION
  Report Type: 
  Country: None (occurrence: None)
  Receive Date: 20080801
  Receipt Date: 20080725
  Transmission Date: 20090109
  Serious: Yes (Other)
  Sender: FDA-Public Use
  Company Number: DE-TEVA-175164USA

PATIENT
  Sex: Male

DRUGS (1)
  1. PIMOZIDE TABLETS [Suspect]
     Indication: DRUG USE FOR UNKNOWN INDICATION
     Route: 048
     Dates: start: 19860101, end: 20080301

REACTIONS (2)
  - ANGIOEDEMA [None]
  - THERAPEUTIC RESPONSE UNEXPECTED [None]
